FAERS Safety Report 10795445 (Version 1)
Quarter: 2015Q1

REPORT INFORMATION
  Report Type: Spontaneous
  Country: US (occurrence: US)
  Receive Date: 20150215
  Receipt Date: 20150215
  Transmission Date: 20150721
  Serious: Yes (Death, Other)
  Sender: FDA-Public Use
  Company Number: CHPA2015US002056

PATIENT
  Age: 43 Year
  Sex: Female

DRUGS (1)
  1. DIPHENHYDRAMINE [Suspect]
     Active Substance: DIPHENHYDRAMINE
     Indication: PRODUCT USED FOR UNKNOWN INDICATION
     Dosage: 325 DF, ONCE/SINGLE
     Route: 048

REACTIONS (14)
  - Cardio-respiratory arrest [Unknown]
  - Coma scale abnormal [Unknown]
  - Overdose [Fatal]
  - Corneal reflex decreased [Unknown]
  - Areflexia [Unknown]
  - Skin warm [Unknown]
  - Completed suicide [Fatal]
  - Unresponsive to stimuli [Unknown]
  - Epistaxis [Unknown]
  - Disseminated intravascular coagulation [Unknown]
  - Gastrointestinal sounds abnormal [Unknown]
  - Pupil fixed [Unknown]
  - Pulse absent [Unknown]
  - Mucous membrane disorder [Unknown]
